FAERS Safety Report 9701128 (Version 2)
Quarter: 2014Q1

REPORT INFORMATION
  Report Type: Spontaneous
  Country: JP (occurrence: JP)
  Receive Date: 20131121
  Receipt Date: 20140131
  Transmission Date: 20141002
  Serious: Yes (Death)
  Sender: FDA-Public Use
  Company Number: JP-SA-2013SA117304

PATIENT
  Age: 66 Year
  Sex: Male
  Weight: 61.4 kg

DRUGS (12)
  1. PLAVIX [Suspect]
     Indication: MYOCARDIAL ISCHAEMIA
     Route: 048
     Dates: start: 20130917, end: 20130927
  2. NEXIUM [Suspect]
     Indication: ULCER
     Route: 048
     Dates: start: 20130917, end: 20130930
  3. PIPERACILLIN SODIUM [Suspect]
     Indication: PNEUMONIA
     Route: 041
     Dates: start: 20130913, end: 20130918
  4. FINIBAX [Suspect]
     Indication: PNEUMONIA
     Route: 041
     Dates: start: 20130918, end: 20130926
  5. CRAVIT [Suspect]
     Indication: PNEUMONIA
     Route: 048
     Dates: start: 20130917, end: 20130918
  6. ELECTROLYTE SOLUTIONS [Suspect]
     Indication: ILL-DEFINED DISORDER
     Dosage: ROUTE: CV
     Dates: start: 20130921, end: 20131003
  7. SIGMART [Concomitant]
  8. INOVAN [Concomitant]
     Indication: CARDIAC FAILURE
     Route: 042
     Dates: start: 20130912, end: 20131003
  9. LASIX [Concomitant]
  10. PACIL [Concomitant]
     Route: 041
     Dates: start: 20130926, end: 20130927
  11. BAYASPIRIN [Concomitant]
     Route: 048
     Dates: start: 20130917, end: 20130930
  12. DOBUPUM [Concomitant]
     Indication: CARDIAC FAILURE
     Route: 042
     Dates: start: 20130912

REACTIONS (3)
  - Interstitial lung disease [Fatal]
  - Liver disorder [Fatal]
  - Hepatic enzyme increased [Fatal]
